FAERS Safety Report 7221453-X (Version None)
Quarter: 2011Q1

REPORT INFORMATION
  Report Type: 
  Country: None (occurrence: None)
  Receive Date: 20110112
  Receipt Date: 20110107
  Transmission Date: 20110831
  Serious: Yes (Hospitalization)
  Sender: FDA-Public Use
  Company Number: FR-GENZYME-THYR-1000435

PATIENT
  Sex: Male
  Weight: 63.8 kg

DRUGS (3)
  1. LEVOTHYROX [Concomitant]
     Indication: PRODUCT USED FOR UNKNOWN INDICATION
     Dosage: 150 MCG, QD
  2. THYROGEN [Suspect]
     Indication: DIAGNOSTIC PROCEDURE
     Dosage: 0.9 MG, ONCE
     Route: 030
     Dates: start: 20100412, end: 20100412
  3. CALCIUM [Concomitant]
     Indication: PRODUCT USED FOR UNKNOWN INDICATION
     Dosage: 3 OTHER, UNK

REACTIONS (2)
  - DYSPEPSIA [None]
  - PRESYNCOPE [None]
